FAERS Safety Report 9035406 (Version 1)
Quarter: 2013Q1

REPORT INFORMATION
  Report Type: Report from Study
  Country: US (occurrence: US)
  Receive Date: 20130129
  Receipt Date: 20130129
  Transmission Date: 20140127
  Serious: No
  Sender: FDA-Public Use
  Company Number: US-ABBOTT-12P-163-0897444-00

PATIENT
  Age: 54 None
  Sex: Female
  Weight: 58.11 kg

DRUGS (2)
  1. HUMIRA 40 MG/0.8 ML PEN [Suspect]
     Indication: PSORIASIS
     Dosage: ONCE
     Dates: start: 201112, end: 201112
  2. HUMIRA 40 MG/0.8 ML PEN [Suspect]
     Dosage: ONCE

REACTIONS (3)
  - Fatigue [Not Recovered/Not Resolved]
  - Retching [Recovered/Resolved]
  - Nausea [Recovered/Resolved]
